FAERS Safety Report 21301186 (Version 1)
Quarter: 2022Q3

REPORT INFORMATION
  Report Type: Spontaneous
  Country: US (occurrence: US)
  Receive Date: 20220907
  Receipt Date: 20220907
  Transmission Date: 20221026
  Serious: No
  Sender: FDA-Public Use
  Company Number: US-drreddys-SPO/USA/22/0154059

PATIENT
  Age: 79 Year
  Sex: Female

DRUGS (2)
  1. METOPROLOL SUCCINATE [Suspect]
     Active Substance: METOPROLOL SUCCINATE
     Indication: Heart rate irregular
     Dosage: HAD TO TAKE 3 TABLET
     Dates: start: 20220819, end: 20220823
  2. METOPROLOL SUCCINATE [Suspect]
     Active Substance: METOPROLOL SUCCINATE
     Indication: Tachycardia

REACTIONS (3)
  - Overdose [Unknown]
  - Drug ineffective [Unknown]
  - Product quality issue [Unknown]
